FAERS Safety Report 9705156 (Version 4)
Quarter: 2015Q1

REPORT INFORMATION
  Report Type: Spontaneous
  Country: US (occurrence: US)
  Receive Date: 20131122
  Receipt Date: 20150326
  Transmission Date: 20150721
  Serious: Yes (Life-Threatening, Hospitalization, Other)
  Sender: FDA-Public Use
  Company Number: US-BAYER-2013-139771

PATIENT
  Age: 29 Year
  Sex: Female

DRUGS (1)
  1. MIRENA [Suspect]
     Active Substance: LEVONORGESTREL
     Indication: CONTRACEPTION
     Dosage: 20 MCG/24HR, CONT
     Route: 015
     Dates: start: 20061102, end: 20110519

REACTIONS (11)
  - Ovarian cyst ruptured [None]
  - Ectopic pregnancy [None]
  - Emotional distress [None]
  - Haemorrhagic cyst [None]
  - Injury [None]
  - Anxiety [None]
  - Device defective [None]
  - General physical health deterioration [None]
  - Abdominal pain lower [None]
  - Anhedonia [None]
  - Pelvic pain [None]

NARRATIVE: CASE EVENT DATE: 201109
